FAERS Safety Report 26164179 (Version 1)
Quarter: 2025Q4

REPORT INFORMATION
  Report Type: Spontaneous
  Country: US (occurrence: US)
  Receive Date: 20251216
  Receipt Date: 20251216
  Transmission Date: 20260118
  Serious: No
  Sender: SANOFI AVENTIS
  Company Number: US-SA-2025SA371132

PATIENT
  Age: 23 Year
  Sex: Female
  Weight: 108.18 kg

DRUGS (17)
  1. DUPIXENT [Suspect]
     Active Substance: DUPILUMAB
     Indication: Dermatitis atopic
     Dosage: 300 MG, QOW
     Route: 058
  2. CLINDAMYCIN HYDROCHLORIDE [Concomitant]
     Active Substance: CLINDAMYCIN HYDROCHLORIDE
  3. TRIAMCINOLONE ACETONIDE [Concomitant]
     Active Substance: TRIAMCINOLONE ACETONIDE
  4. TRETINOIN [Concomitant]
     Active Substance: TRETINOIN
  5. VILAZODONE HYDROCHLORIDE [Concomitant]
     Active Substance: VILAZODONE HYDROCHLORIDE
  6. RITALIN [Concomitant]
     Active Substance: METHYLPHENIDATE HYDROCHLORIDE
  7. CORTISONE [Concomitant]
     Active Substance: CORTISONE
  8. FLAXSEED [Concomitant]
     Active Substance: FLAX SEED
  9. MAGNESIUM [Concomitant]
     Active Substance: MAGNESIUM
  10. PEPCID [Concomitant]
     Active Substance: FAMOTIDINE
  11. IRON [Concomitant]
     Active Substance: IRON
  12. ALLEGRA ALLERGY [Concomitant]
     Active Substance: FEXOFENADINE HYDROCHLORIDE
  13. VITAMINS [Concomitant]
     Active Substance: VITAMINS
  14. ZYRTEC [Concomitant]
     Active Substance: CETIRIZINE HYDROCHLORIDE
  15. ALBUTEROL SULFATE [Concomitant]
     Active Substance: ALBUTEROL SULFATE
  16. PROPRANOLOL HYDROCHLORIDE [Concomitant]
     Active Substance: PROPRANOLOL HYDROCHLORIDE
  17. ZEPBOUND [Concomitant]
     Active Substance: TIRZEPATIDE

REACTIONS (2)
  - Contusion [Unknown]
  - Rash [Recovering/Resolving]
